FAERS Safety Report 5524237-3 (Version None)
Quarter: 2007Q4

REPORT INFORMATION
  Report Type: 
  Country: None (occurrence: None)
  Receive Date: 20071121
  Receipt Date: 20071115
  Transmission Date: 20080405
  Serious: Yes (Other)
  Sender: FDA-Public Use
  Company Number: CA-PFIZER INC-2007083754

PATIENT
  Age: 70 Year
  Sex: Female

DRUGS (5)
  1. LIPITOR [Suspect]
  2. PANTOPRAZOLE SODIUM [Interacting]
     Indication: DYSPEPSIA
  3. APO-RANITIDINE [Concomitant]
     Route: 048
  4. LISINOPRIL [Concomitant]
     Route: 048
  5. SYNTHROID [Concomitant]
     Route: 048

REACTIONS (5)
  - CARDIAC FLUTTER [None]
  - DRUG INTERACTION [None]
  - DYSPEPSIA [None]
  - GAIT DISTURBANCE [None]
  - MALAISE [None]
